FAERS Safety Report 21000857 (Version 1)
Quarter: 2022Q2

REPORT INFORMATION
  Report Type: Spontaneous
  Country: FR (occurrence: FR)
  Receive Date: 20220624
  Receipt Date: 20220624
  Transmission Date: 20220721
  Serious: Yes (Hospitalization, Other)
  Sender: FDA-Public Use
  Company Number: FR-GRUNENTHAL-2022-105008

PATIENT
  Age: 18 Year
  Sex: Male

DRUGS (1)
  1. TRAMADOL HYDROCHLORIDE [Suspect]
     Active Substance: TRAMADOL HYDROCHLORIDE
     Indication: Headache
     Dosage: UNK
     Route: 065

REACTIONS (13)
  - Hypoglycaemia [Recovering/Resolving]
  - Cardio-respiratory arrest [Recovering/Resolving]
  - Toxicity to various agents [Recovering/Resolving]
  - Multiple organ dysfunction syndrome [Recovering/Resolving]
  - Lactic acidosis [Recovering/Resolving]
  - Renal failure [Recovering/Resolving]
  - Rhabdomyolysis [Recovering/Resolving]
  - Cell death [Recovering/Resolving]
  - Hepatic failure [Recovering/Resolving]
  - Thrombocytopenia [Recovering/Resolving]
  - Pneumonia aspiration [Recovering/Resolving]
  - Intentional product misuse [Recovering/Resolving]
  - Overdose [Recovering/Resolving]
